FAERS Safety Report 4300613-1 (Version None)
Quarter: 2004Q1

REPORT INFORMATION
  Report Type: 
  Country: None (occurrence: None)
  Receive Date: 20040218
  Receipt Date: 20040129
  Transmission Date: 20041129
  Serious: Yes (Other)
  Sender: FDA-Public Use
  Company Number: US_011279177

PATIENT
  Age: 58 Year
  Sex: Male
  Weight: 105 kg

DRUGS (6)
  1. HUMULIN N [Suspect]
     Indication: DIABETES MELLITUS
     Dosage: 80 U/DAY
     Dates: start: 19860101
  2. FOLIC ACID [Concomitant]
  3. NIACIN [Concomitant]
  4. VITAMIN B-12 [Concomitant]
  5. VITAMIN C [Concomitant]
  6. VITAMIN E [Concomitant]

REACTIONS (4)
  - EYE HAEMORRHAGE [None]
  - MYOCARDIAL INFARCTION [None]
  - PHARMACEUTICAL PRODUCT COMPLAINT [None]
  - SKIN CANCER [None]
